FAERS Safety Report 20091676 (Version 2)
Quarter: 2021Q4

REPORT INFORMATION
  Report Type: Spontaneous
  Country: US (occurrence: US)
  Receive Date: 20211119
  Receipt Date: 20211206
  Transmission Date: 20220303
  Serious: No
  Sender: FDA-Public Use
  Company Number: US-PFIZER INC-202101466258

PATIENT
  Age: 58 Year
  Sex: Female

DRUGS (2)
  1. TOZINAMERAN [Suspect]
     Active Substance: TOZINAMERAN
     Indication: COVID-19 immunisation
     Dosage: DOSE NUMBER UNKNOWN, SINGLE
     Dates: start: 202110, end: 202110
  2. XELJANZ XR [Suspect]
     Active Substance: TOFACITINIB CITRATE
     Indication: Arthritis
     Dosage: 11 MG, 1X/DAY
     Route: 048
     Dates: start: 202108

REACTIONS (9)
  - Energy increased [Unknown]
  - Arthralgia [Unknown]
  - Pain in extremity [Unknown]
  - Joint stiffness [Unknown]
  - Fatigue [Unknown]
  - Alopecia [Unknown]
  - Depressed mood [Unknown]
  - Trigger finger [Unknown]
  - Stress [Unknown]
